FAERS Safety Report 7406372-8 (Version None)
Quarter: 2011Q2

REPORT INFORMATION
  Report Type: 
  Country: None (occurrence: None)
  Receive Date: 20110405
  Receipt Date: 20110405
  Transmission Date: 20111010
  Serious: Yes (Other)
  Sender: FDA-Public Use
  Company Number: None

PATIENT
  Age: 17 Year
  Sex: Female
  Weight: 79.3 kg

DRUGS (2)
  1. CEFOTAXIME [Suspect]
  2. CLAFORAN [Suspect]
     Indication: PERITONEAL ABSCESS
     Dosage: 2GM Q8H IV
     Route: 042
     Dates: start: 20110301, end: 20110328

REACTIONS (1)
  - GRANULOCYTOPENIA [None]
